FAERS Safety Report 22676498 (Version 2)
Quarter: 2023Q4

REPORT INFORMATION
  Report Type: Spontaneous
  Country: US (occurrence: US)
  Receive Date: 20230706
  Receipt Date: 20231204
  Transmission Date: 20240109
  Serious: Yes (Other)
  Sender: FDA-Public Use
  Company Number: US-ABBVIE-5316791

PATIENT
  Age: 87 Year
  Sex: Female

DRUGS (10)
  1. DURYSTA [Suspect]
     Active Substance: BIMATOPROST
     Indication: Open angle glaucoma
     Dosage: TIME INTERVAL: AS NECESSARY: FORM STRENGTH: 10 MICROGRAM, FREQUENCY: ONE DAY
     Route: 031
     Dates: start: 20211021, end: 20211021
  2. DURYSTA [Suspect]
     Active Substance: BIMATOPROST
     Dosage: TIME INTERVAL: AS NECESSARY: FORM STRENGTH: 10 MICROGRAM, FREQUENCY: ONE DAY
     Route: 031
     Dates: start: 20220328, end: 20220328
  3. DORZOLAMIDE [Concomitant]
     Active Substance: DORZOLAMIDE
     Indication: Glaucoma
  4. TIMOLOL [Concomitant]
     Active Substance: TIMOLOL
     Indication: Glaucoma
  5. SYNTHROID [Concomitant]
     Active Substance: LEVOTHYROXINE SODIUM
     Indication: Product used for unknown indication
  6. VITAMIN B1 [Concomitant]
     Active Substance: THIAMINE HYDROCHLORIDE
     Indication: Product used for unknown indication
  7. ASPIRIN [Concomitant]
     Active Substance: ASPIRIN
     Indication: Product used for unknown indication
  8. COLACE [Concomitant]
     Active Substance: DOCUSATE SODIUM
     Indication: Product used for unknown indication
  9. MAGNESIUM [Concomitant]
     Active Substance: MAGNESIUM
     Indication: Product used for unknown indication
  10. CLARINEX [Concomitant]
     Active Substance: DESLORATADINE
     Indication: Product used for unknown indication

REACTIONS (6)
  - Cystoid macular oedema [Recovered/Resolved]
  - Corneal decompensation [Recovering/Resolving]
  - Corneal endothelial cell loss [Unknown]
  - Corneal oedema [Recovering/Resolving]
  - Visual impairment [Recovering/Resolving]
  - Iritis [Recovered/Resolved]

NARRATIVE: CASE EVENT DATE: 20220126
